FAERS Safety Report 6497929-X (Version None)
Quarter: 2009Q4

REPORT INFORMATION
  Report Type: 
  Country: None (occurrence: None)
  Receive Date: 20091215
  Receipt Date: 20091204
  Transmission Date: 20100525
  Serious: Yes (Hospitalization)
  Sender: FDA-Public Use
  Company Number: DE-ROCHE-664911

PATIENT
  Sex: Male
  Weight: 70 kg

DRUGS (3)
  1. PEG-INTERFERON ALFA 2A (RO 25-8310) [Suspect]
     Dosage: FORM: SYRINGE, LAST DOSE PRIOR TO SAE: 19 OCT 2009, THERAPY STOPPED: TWO WEEKS AGO.
     Route: 058
     Dates: start: 20090929
  2. RIBAVIRIN [Suspect]
     Dosage: REPORTED FREQUENCY: PER DAY, THERAPY STOPPED: FOUR WEEKS AGO.
     Route: 048
     Dates: start: 20090929
  3. PARACETAMOL [Concomitant]
     Dosage: FREQUENCY: AS NECESSARY (PRN)
     Dates: start: 20090929

REACTIONS (1)
  - THROMBOSIS [None]
